FAERS Safety Report 23472505 (Version 1)
Quarter: 2024Q1

REPORT INFORMATION
  Report Type: Spontaneous
  Country: GB (occurrence: RU)
  Receive Date: 20240202
  Receipt Date: 20240202
  Transmission Date: 20240409
  Serious: Yes (Hospitalization, Other)
  Sender: FDA-Public Use
  Company Number: RU-ACRAF SpA-2024-033341

PATIENT

DRUGS (2)
  1. LATUDA [Suspect]
     Active Substance: LURASIDONE HYDROCHLORIDE
     Indication: Schizophrenia
     Dosage: ON 13-SEP-2023 THE DOSE WAS TITRATED TO 80 MG
     Route: 048
     Dates: start: 20230907, end: 20230920
  2. LAMOTRIGINE [Suspect]
     Active Substance: LAMOTRIGINE
     Indication: Schizophrenia
     Dosage: ON 12-SEP-2023 THE DOSE WAS TITRATED TO 100 MG
     Route: 065
     Dates: start: 20230907, end: 20230920

REACTIONS (1)
  - Dermatitis allergic [Recovering/Resolving]

NARRATIVE: CASE EVENT DATE: 20230919
